FAERS Safety Report 4294376-6 (Version None)
Quarter: 2004Q1

REPORT INFORMATION
  Report Type: 
  Country: None (occurrence: None)
  Receive Date: 20040211
  Receipt Date: 20040108
  Transmission Date: 20041129
  Serious: Yes (Hospitalization)
  Sender: FDA-Public Use
  Company Number: US-BRISTOL-MYERS SQUIBB COMPANY-12474631

PATIENT
  Age: 53 Year
  Sex: Female
  Weight: 59 kg

DRUGS (6)
  1. PLATINOL [Suspect]
     Indication: LUNG NEOPLASM MALIGNANT
     Route: 042
     Dates: start: 20021209, end: 20021209
  2. TAXOL [Suspect]
     Indication: LUNG NEOPLASM MALIGNANT
     Route: 042
     Dates: start: 20021209, end: 20021209
  3. LOPRESSOR [Concomitant]
     Indication: SUPRAVENTRICULAR TACHYCARDIA
  4. K-DUR 10 [Concomitant]
  5. MAGNESIUM GLUCONATE [Concomitant]
     Route: 048
  6. ATIVAN [Concomitant]
     Indication: ANXIETY

REACTIONS (2)
  - BLOOD POTASSIUM DECREASED [None]
  - RENAL FAILURE ACUTE [None]
